FAERS Safety Report 17648409 (Version 1)
Quarter: 2020Q2

REPORT INFORMATION
  Report Type: Spontaneous
  Country: US (occurrence: US)
  Receive Date: 20200408
  Receipt Date: 20200408
  Transmission Date: 20200713
  Serious: Yes (Hospitalization, Other)
  Sender: FDA-Public Use
  Company Number: US-AMGEN-USASP2020056925

PATIENT
  Sex: Female

DRUGS (1)
  1. ENBREL [Suspect]
     Active Substance: ETANERCEPT
     Indication: RHEUMATOID ARTHRITIS
     Dosage: 50 MILLIGRAM, QWK
     Route: 065

REACTIONS (6)
  - Osteoporosis [Unknown]
  - Intervertebral disc protrusion [Unknown]
  - Device issue [Unknown]
  - Spinal operation [Unknown]
  - Cough [Not Recovered/Not Resolved]
  - Drug dose omission by device [Unknown]

NARRATIVE: CASE EVENT DATE: 2019
